FAERS Safety Report 6936011-1 (Version None)
Quarter: 2010Q3

REPORT INFORMATION
  Report Type: 
  Country: None (occurrence: None)
  Receive Date: 20100823
  Receipt Date: 20100818
  Transmission Date: 20110219
  Serious: Yes (Other)
  Sender: FDA-Public Use
  Company Number: US-BRISTOL-MYERS SQUIBB COMPANY-15244668

PATIENT
  Age: 56 Year
  Sex: Female
  Weight: 68 kg

DRUGS (2)
  1. CYCLOPHOSPHAMIDE [Suspect]
     Indication: BREAST CANCER METASTATIC
     Dosage: OVER 60MIN ON DAY 3
     Route: 042
     Dates: start: 20090923
  2. DOXORUBICIN HCL [Suspect]
     Indication: BREAST CANCER METASTATIC
     Dosage: IVP OVER 15MIN ON DAY 3
     Dates: start: 20090923

REACTIONS (2)
  - GRANULOCYTES ABNORMAL [None]
  - NEUTROPHIL COUNT DECREASED [None]
